FAERS Safety Report 4348062-4 (Version None)
Quarter: 2004Q2

REPORT INFORMATION
  Report Type: 
  Country: None (occurrence: None)
  Receive Date: 20040422
  Receipt Date: 20040413
  Transmission Date: 20050107
  Serious: Yes (Hospitalization, Other)
  Sender: FDA-Public Use
  Company Number: FRWYE700413APR04

PATIENT
  Age: 80 Year
  Sex: Male

DRUGS (12)
  1. EFFEXOR [Suspect]
     Dosage: 37.5 MG 2X PER 1 DAY
     Route: 048
     Dates: start: 20040128, end: 20040131
  2. LEXOMIL (BROMAZEPAM, ,0) [Suspect]
     Dosage: 0.5 TABLET 1X PER 1 DAY
     Route: 048
     Dates: start: 20040128, end: 20040203
  3. PROSCAR [Concomitant]
  4. LASIX [Concomitant]
  5. CALCIDIA (CALCIUM CARBONATE) [Concomitant]
  6. ALLOPURINOL [Concomitant]
  7. KARDEGIC (ACETYLSALICYLATE) [Concomitant]
  8. EUPANTOL (PANTOPRAZOLE) [Concomitant]
  9. ARANESP [Concomitant]
  10. DIGOXIN [Concomitant]
  11. RISORDAN (ISOSORBIDE DINITRATE) [Concomitant]
  12. AMLODIPINE BESYLATE [Concomitant]

REACTIONS (5)
  - ABNORMAL BEHAVIOUR [None]
  - AFFECTIVE DISORDER [None]
  - EMOTIONAL DISORDER [None]
  - MENTAL DISORDER [None]
  - PERSONALITY DISORDER [None]
